FAERS Safety Report 6250007-7 (Version None)
Quarter: 2009Q2

REPORT INFORMATION
  Report Type: 
  Country: None (occurrence: None)
  Receive Date: 20090629
  Receipt Date: 20090617
  Transmission Date: 20091009
  Serious: Yes (Other)
  Sender: FDA-Public Use
  Company Number: PHHY2009JP20344

PATIENT
  Sex: Male
  Weight: 61 kg

DRUGS (8)
  1. DIOVAN T30230+TAB+HY [Suspect]
     Dosage: 80 MG, QD
     Route: 048
     Dates: start: 20080126, end: 20080129
  2. DIOVAN T30230+TAB+HY [Suspect]
     Dosage: 80 MG/DAY
     Route: 048
     Dates: start: 20080312, end: 20080412
  3. DIOVAN T30230+TAB+HY [Suspect]
     Dosage: 80 MG/DAY
     Dates: start: 20090419
  4. TAKEPRON [Concomitant]
     Dosage: 15 MG
     Route: 048
     Dates: start: 20070120
  5. AMARYL [Concomitant]
     Dosage: 2 MG
     Route: 048
     Dates: start: 20070224
  6. LIPITOR [Concomitant]
     Dosage: 10 MG
     Route: 048
     Dates: start: 20070818
  7. PLAVIX [Concomitant]
     Dosage: 75 MG
     Route: 048
     Dates: start: 20080130
  8. BASEN [Concomitant]
     Dosage: 0.6 MG, QD
     Route: 048
     Dates: start: 20081118

REACTIONS (2)
  - BLOOD GLUCOSE INCREASED [None]
  - LOSS OF CONSCIOUSNESS [None]
